FAERS Safety Report 15927971 (Version 1)
Quarter: 2019Q1

REPORT INFORMATION
  Report Type: Spontaneous
  Country: US (occurrence: US)
  Receive Date: 20190115
  Receipt Date: 20190115
  Transmission Date: 20190417
  Serious: Yes (Hospitalization)
  Sender: FDA-Public Use
  Company Number: None

PATIENT
  Age: 9 Year
  Sex: Male
  Weight: 21.7 kg

DRUGS (4)
  1. METHOTREXATE. [Suspect]
     Active Substance: METHOTREXATE
     Dates: end: 20181227
  2. VINCRISTINE SULFATE. [Suspect]
     Active Substance: VINCRISTINE SULFATE
     Dates: end: 20181220
  3. DEXAMETHASONE. [Suspect]
     Active Substance: DEXAMETHASONE
     Dates: end: 20181225
  4. MERCAPTOPURINE. [Suspect]
     Active Substance: MERCAPTOPURINE
     Dates: end: 20181229

REACTIONS (24)
  - Escherichia bacteraemia [None]
  - Hypertension [None]
  - Pancytopenia [None]
  - Urinary retention [None]
  - Nephropathy toxic [None]
  - Oedema peripheral [None]
  - Cholestasis [None]
  - Viral infection [None]
  - Condition aggravated [None]
  - Polyuria [None]
  - Face oedema [None]
  - Perirectal abscess [None]
  - Human rhinovirus test positive [None]
  - Pleural effusion [None]
  - Neutropenic colitis [None]
  - Pancreatitis [None]
  - Coagulopathy [None]
  - Ascites [None]
  - Acute kidney injury [None]
  - Acute respiratory distress syndrome [None]
  - Hyperglycaemia [None]
  - Hepatitis acute [None]
  - Back pain [None]
  - Fistula [None]

NARRATIVE: CASE EVENT DATE: 20181230
